FAERS Safety Report 5276974-6 (Version None)
Quarter: 2007Q1

REPORT INFORMATION
  Report Type: 
  Country: None (occurrence: None)
  Receive Date: 20070327
  Receipt Date: 20070112
  Transmission Date: 20070707
  Serious: No
  Sender: FDA-Public Use
  Company Number: US-BRISTOL-MYERS SQUIBB COMPANY-13593405

PATIENT
  Age: 59 Year
  Sex: Female

DRUGS (2)
  1. ORENCIA [Suspect]
     Indication: RHEUMATOID ARTHRITIS
     Route: 042
     Dates: start: 20061001
  2. METHOTREXATE [Concomitant]
     Route: 048

REACTIONS (1)
  - PARAESTHESIA [None]
